FAERS Safety Report 4732349-7 (Version None)
Quarter: 2005Q3

REPORT INFORMATION
  Report Type: 
  Country: None (occurrence: None)
  Receive Date: 20050721
  Receipt Date: 20050505
  Transmission Date: 20060218
  Serious: No
  Sender: FDA-Public Use
  Company Number: 2005SP000621

PATIENT
  Age: 60 Year
  Sex: Male
  Weight: 83.9154 kg

DRUGS (4)
  1. LUNESTA [Suspect]
     Dosage: 1 MG ORAL
     Route: 048
     Dates: start: 20050502
  2. LUNESTA [Suspect]
     Dosage: 1 MG ORAL
     Route: 048
     Dates: start: 20050504
  3. AMITRIPTYLINE HCL [Concomitant]
  4. PROZAC [Concomitant]

REACTIONS (2)
  - DRUG INEFFECTIVE [None]
  - INITIAL INSOMNIA [None]
